FAERS Safety Report 19787558 (Version 1)
Quarter: 2021Q3

REPORT INFORMATION
  Report Type: Spontaneous
  Country: DE (occurrence: DE)
  Receive Date: 20210903
  Receipt Date: 20210903
  Transmission Date: 20211014
  Serious: Yes (Hospitalization)
  Sender: FDA-Public Use
  Company Number: DE-MYLANLABS-2021M1057705

PATIENT
  Age: 81 Year
  Sex: Female
  Weight: 43 kg

DRUGS (15)
  1. INDAPAMID [Concomitant]
     Active Substance: INDAPAMIDE
     Dosage: 2.5 MILLIGRAM, PRN (2.5 MG, UP TO 2 X DAILY IF NECESSARY)
  2. SERTRALINE [Suspect]
     Active Substance: SERTRALINE HYDROCHLORIDE
     Indication: PRODUCT USED FOR UNKNOWN INDICATION
     Dosage: 25 MILLIGRAM, QD (25 MG, 1?0?0?0)
  3. METOPROLOL. [Concomitant]
     Active Substance: METOPROLOL
     Dosage: 47.5 MILLIGRAM, BID (47.5 MG, 1?0?1?0)
  4. NATRIUMHYDROGENCARBONAT [Concomitant]
     Active Substance: SODIUM BICARBONATE
     Dosage: 500 MILLIGRAM, QD (500 MG, 1?0?0?0)
  5. APIXABAN [Suspect]
     Active Substance: APIXABAN
     Indication: PRODUCT USED FOR UNKNOWN INDICATION
     Dosage: 2.5 MILLIGRAM, BID (2.5 MG, 1?0?1?0)
  6. FEBUXOSTAT. [Concomitant]
     Active Substance: FEBUXOSTAT
     Dosage: 40 MILLIGRAM, Q2D (80 MG/ALLE 2 TAGE, 0.5?0?0?0)
  7. ALLOPURINOL. [Concomitant]
     Active Substance: ALLOPURINOL
     Dosage: 100 MILLIGRAM, QD (100 MG, 1?0?0?0)
  8. VITAMIN D                          /00318501/ [Concomitant]
     Active Substance: CHOLECALCIFEROL
     Dosage: 2000 IE/2XMONAT, 1X
  9. DEFERASIROX. [Concomitant]
     Active Substance: DEFERASIROX
     Dosage: 360 MILLIGRAM, QD 180 MG, 2?0?0?0)
  10. AMLODIPIN                          /00972401/ [Concomitant]
     Active Substance: AMLODIPINE BESYLATE
     Dosage: 5 MILLIGRAM, BID (5 MG, 1?0?1?0)
  11. SPIRONOLACTON [Concomitant]
     Active Substance: SPIRONOLACTONE
     Dosage: 25 MILLIGRAM, Q2D (25 MG/ALLE 2, 1?0?0?0)
  12. FUROSEMID                          /00032601/ [Concomitant]
     Active Substance: FUROSEMIDE
     Dosage: 160 MILLIGRAM, QD (40 MG, 2?2?0?0)
  13. URAPIDIL [Concomitant]
     Active Substance: URAPIDIL
     Dosage: 30 MILLIGRAM, BID (30 MG, 1?0?1?0)
  14. ERYTHROPOIETIN [Concomitant]
     Active Substance: ERYTHROPOIETIN
     Dosage: 100 MICROGRAM, Q2W (100 ?G/ALLE 14 TAGE, 1X)
     Route: 058
  15. LATANOPROST. [Concomitant]
     Active Substance: LATANOPROST
     Dosage: UNK, QD (0?0?1?0)
     Route: 047

REACTIONS (3)
  - Haemorrhoidal haemorrhage [Unknown]
  - Pallor [Unknown]
  - Anaemia [Unknown]
